FAERS Safety Report 8320696-1 (Version None)
Quarter: 2012Q2

REPORT INFORMATION
  Report Type: 
  Country: None (occurrence: None)
  Receive Date: 20120430
  Receipt Date: 20120419
  Transmission Date: 20120825
  Serious: Yes (Other)
  Sender: FDA-Public Use
  Company Number: GB-SANOFI-AVENTIS-2012SA012344

PATIENT
  Age: 75 Year
  Sex: Male
  Weight: 100 kg

DRUGS (12)
  1. RAMIPRIL [Suspect]
     Route: 065
  2. CYSTEINE [Suspect]
     Route: 065
  3. VERAPAMIL [Suspect]
     Indication: ATRIAL FIBRILLATION
     Route: 065
  4. PREDNISOLONE [Suspect]
     Indication: CHRONIC OBSTRUCTIVE PULMONARY DISEASE
     Route: 065
  5. METFORMIN HCL [Suspect]
     Route: 065
  6. FUROSEMIDE [Suspect]
     Route: 065
  7. WARFARIN SODIUM [Suspect]
     Indication: ATRIAL FIBRILLATION
     Route: 065
  8. ALBUTEROL [Suspect]
     Route: 065
  9. FORMOTEROL FUMARATE [Suspect]
     Route: 065
  10. BUDESONIDE/FORMOTEROL [Concomitant]
     Indication: CHRONIC OBSTRUCTIVE PULMONARY DISEASE
  11. ATORVASTATIN CALCIUM [Suspect]
     Route: 065
  12. SPIRIVA [Concomitant]
     Indication: CHRONIC OBSTRUCTIVE PULMONARY DISEASE
     Route: 065

REACTIONS (1)
  - HALLUCINATION [None]
